FAERS Safety Report 5669077-X (Version None)
Quarter: 2008Q1

REPORT INFORMATION
  Report Type: 
  Country: None (occurrence: None)
  Receive Date: 20080317
  Receipt Date: 20080310
  Transmission Date: 20080703
  Serious: Yes (Hospitalization)
  Sender: FDA-Public Use
  Company Number: GB-AVENTIS-200812297GDDC

PATIENT
  Age: 79 Year
  Sex: Female

DRUGS (3)
  1. FEXOFENADINE [Suspect]
     Route: 048
     Dates: end: 20080227
  2. FEXOFENADINE [Suspect]
     Indication: RASH
     Route: 048
     Dates: end: 20080227
  3. OMEPRAZOLE [Concomitant]
     Route: 048

REACTIONS (5)
  - BUNDLE BRANCH BLOCK RIGHT [None]
  - DIZZINESS [None]
  - ELECTROCARDIOGRAM QT PROLONGED [None]
  - NAUSEA [None]
  - SYNCOPE [None]
